FAERS Safety Report 9548115 (Version 1)
Quarter: 2013Q3

REPORT INFORMATION
  Report Type: Spontaneous
  Country: US (occurrence: None)
  Receive Date: 20130710
  Receipt Date: 20130710
  Transmission Date: 20140515
  Serious: Yes (Other)
  Sender: FDA-Public Use
  Company Number: US-ME-2012P1060646

PATIENT
  Age: 18 Year
  Sex: Female
  Weight: 63.5 kg

DRUGS (4)
  1. SOLODYN ER [Suspect]
     Indication: ACNE
     Dosage: 1 IN 1 D, ORAL
     Route: 048
     Dates: start: 20100630, end: 20120925
  2. BENTYL [Concomitant]
  3. METAMUCIL [Concomitant]
  4. UNSPECIFIED VITAMINS [Concomitant]

REACTIONS (2)
  - Benign intracranial hypertension [None]
  - Benign intracranial hypertension [None]
